FAERS Safety Report 21899880 (Version 1)
Quarter: 2023Q1

REPORT INFORMATION
  Report Type: Spontaneous
  Country: US (occurrence: US)
  Receive Date: 20230123
  Receipt Date: 20230123
  Transmission Date: 20230417
  Serious: No
  Sender: FDA-Public Use
  Company Number: US-SA-SAC20230123000358

PATIENT

DRUGS (1)
  1. AMBIEN [Suspect]
     Active Substance: ZOLPIDEM TARTRATE
     Indication: Rash
     Dosage: UNK
     Route: 065

REACTIONS (1)
  - Drug ineffective [Unknown]
